FAERS Safety Report 11165248 (Version 2)
Quarter: 2015Q3

REPORT INFORMATION
  Report Type: Spontaneous
  Country: US (occurrence: US)
  Receive Date: 20150604
  Receipt Date: 20150728
  Transmission Date: 20151125
  Serious: Yes (Other)
  Sender: FDA-Public Use
  Company Number: US-ASTRAZENECA-2015SE52797

PATIENT
  Age: 428 Month
  Sex: Female
  Weight: 104.3 kg

DRUGS (14)
  1. SEROQUEL [Suspect]
     Active Substance: QUETIAPINE FUMARATE
     Indication: MAJOR DEPRESSION
     Route: 048
     Dates: start: 20150519
  2. GABAPENTIN. [Concomitant]
     Active Substance: GABAPENTIN
     Dosage: TWO TIMES A DAY
  3. CYMBALTA [Concomitant]
     Active Substance: DULOXETINE HYDROCHLORIDE
     Indication: THERAPY CHANGE
  4. PRILOSEC [Suspect]
     Active Substance: OMEPRAZOLE MAGNESIUM
     Indication: GASTROOESOPHAGEAL REFLUX DISEASE
     Dosage: TWO TIMES A DAY
     Route: 048
  5. SEROQUEL [Suspect]
     Active Substance: QUETIAPINE FUMARATE
     Indication: SLEEP DISORDER
     Route: 048
     Dates: start: 2014, end: 20150519
  6. VITAMIN D [Concomitant]
     Active Substance: CHOLECALCIFEROL
  7. SEROQUEL [Suspect]
     Active Substance: QUETIAPINE FUMARATE
     Indication: SLEEP DISORDER
     Route: 048
     Dates: start: 2014
  8. SEROQUEL [Suspect]
     Active Substance: QUETIAPINE FUMARATE
     Indication: SLEEP DISORDER
     Route: 048
     Dates: start: 20150519
  9. TEXFEDRA [Concomitant]
     Indication: MULTIPLE SCLEROSIS
     Dosage: TWO TIMES A DAY
  10. XANAX [Concomitant]
     Active Substance: ALPRAZOLAM
  11. XANAX [Concomitant]
     Active Substance: ALPRAZOLAM
  12. VITAMIN B12 [Concomitant]
     Active Substance: CYANOCOBALAMIN
  13. SEROQUEL [Suspect]
     Active Substance: QUETIAPINE FUMARATE
     Indication: MAJOR DEPRESSION
     Route: 048
     Dates: start: 2014, end: 20150519
  14. SEROQUEL [Suspect]
     Active Substance: QUETIAPINE FUMARATE
     Indication: MAJOR DEPRESSION
     Route: 048
     Dates: start: 2014

REACTIONS (17)
  - Multiple sclerosis [Unknown]
  - Major depression [Unknown]
  - Insomnia [Unknown]
  - Off label use [Unknown]
  - Psoriasis [Unknown]
  - Suicide attempt [Unknown]
  - Diarrhoea haemorrhagic [Recovered/Resolved]
  - Disturbance in attention [Unknown]
  - Fatigue [Unknown]
  - Exposure during pregnancy [Unknown]
  - Anxiety [Not Recovered/Not Resolved]
  - Headache [Not Recovered/Not Resolved]
  - Drug ineffective for unapproved indication [Unknown]
  - Micturition urgency [Unknown]
  - Swelling [Recovered/Resolved]
  - Hypoaesthesia [Unknown]
  - Pruritus [Recovered/Resolved]

NARRATIVE: CASE EVENT DATE: 200909
